FAERS Safety Report 10018165 (Version 2)
Quarter: 2014Q1

REPORT INFORMATION
  Report Type: Spontaneous
  Country: US (occurrence: US)
  Receive Date: 20140318
  Receipt Date: 20140318
  Transmission Date: 20141002
  Serious: No
  Sender: FDA-Public Use
  Company Number: US-BRISTOL-MYERS SQUIBB COMPANY-19084250

PATIENT
  Age: 52 Year
  Sex: Female
  Weight: 82 kg

DRUGS (2)
  1. ERBITUX [Suspect]
     Indication: COLON CANCER
     Dosage: TOTAL:EIGHT CYCLES
  2. IRINOTECAN [Suspect]

REACTIONS (3)
  - Alopecia [Unknown]
  - Dysphonia [Unknown]
  - Dry skin [Unknown]
